FAERS Safety Report 8800988 (Version 2)
Quarter: 2012Q4

REPORT INFORMATION
  Report Type: 
  Country: US (occurrence: US)
  Receive Date: 20120920
  Receipt Date: 20121012
  Transmission Date: 20130627
  Serious: Yes (Death)
  Sender: FDA-Public Use
  Company Number: US-ROCHE-1132341

PATIENT
  Sex: Female

DRUGS (6)
  1. XELODA [Suspect]
     Indication: COLON CANCER
  2. XELODA [Suspect]
     Indication: COLON CANCER
  3. XELODA [Suspect]
     Indication: METASTASES TO LIVER
  4. AVASTIN [Suspect]
     Indication: COLON CANCER
  5. AVASTIN [Suspect]
     Indication: COLON CANCER
  6. AVASTIN [Suspect]
     Indication: METASTASES TO LIVER

REACTIONS (1)
  - Neoplasm malignant [Fatal]
